FAERS Safety Report 4830951-5 (Version None)
Quarter: 2005Q4

REPORT INFORMATION
  Report Type: 
  Country: None (occurrence: None)
  Receive Date: 20051114
  Receipt Date: 20051021
  Transmission Date: 20060501
  Serious: Yes (Hospitalization)
  Sender: FDA-Public Use
  Company Number: 2005150374

PATIENT
  Age: 65 Year
  Sex: Male

DRUGS (4)
  1. IRINOTECAN HCL [Suspect]
     Indication: GASTRIC CANCER
     Dosage: SEE IMAGE
     Route: 042
     Dates: start: 20050412, end: 20050606
  2. IRINOTECAN HCL [Suspect]
     Indication: GASTRIC CANCER
     Dosage: SEE IMAGE
     Route: 042
     Dates: start: 20050627, end: 20050905
  3. TEGAFUR (TEGAFUR) [Suspect]
     Indication: GASTRIC CANCER
     Dosage: SEE IMAGE
     Route: 048
     Dates: start: 20050412, end: 20050613
  4. TEGAFUR (TEGAFUR) [Suspect]
     Indication: GASTRIC CANCER
     Dosage: SEE IMAGE
     Route: 048
     Dates: start: 20050627, end: 20050924

REACTIONS (5)
  - DERMATITIS [None]
  - DERMATOMYOSITIS [None]
  - EFFUSION [None]
  - MALAISE [None]
  - RASH [None]
